FAERS Safety Report 7328806-X (Version None)
Quarter: 2011Q1

REPORT INFORMATION
  Report Type: 
  Country: None (occurrence: None)
  Receive Date: 20110303
  Receipt Date: 20110221
  Transmission Date: 20110831
  Serious: Yes (Hospitalization)
  Sender: FDA-Public Use
  Company Number: US-ROCHE-761374

PATIENT
  Sex: Male
  Weight: 73 kg

DRUGS (10)
  1. DECADRON [Concomitant]
  2. KEPPRA [Concomitant]
  3. OXYCODONE [Concomitant]
     Dosage: APAP PRN
  4. LAMOTRIGINE [Concomitant]
  5. BEVACIZUMAB [Suspect]
     Indication: GLIOBLASTOMA MULTIFORME
     Route: 042
     Dates: start: 20100205, end: 20110111
  6. AVELOX [Concomitant]
  7. COUMADIN [Concomitant]
  8. TEMOZOLOMIDE [Suspect]
     Indication: GLIOBLASTOMA MULTIFORME
     Dosage: FOR 5 DAYS EVERY 2 WEEKS
     Route: 048
     Dates: start: 20100205, end: 20110115
  9. PROAIR HFA [Concomitant]
     Dosage: 2 PUFFS
  10. DILANTIN [Concomitant]

REACTIONS (5)
  - HERPES ZOSTER [None]
  - HALLUCINATION, AUDITORY [None]
  - AGITATION [None]
  - NEURALGIA [None]
  - HALLUCINATION, VISUAL [None]
